FAERS Safety Report 13195145 (Version 3)
Quarter: 2017Q2

REPORT INFORMATION
  Report Type: Report from Study
  Country: NL (occurrence: NL)
  Receive Date: 20170207
  Receipt Date: 20170406
  Transmission Date: 20170830
  Serious: Yes (Hospitalization, Disabling, Other)
  Sender: FDA-Public Use
  Company Number: NL-AMGEN-NLDSL2017018050

PATIENT
  Age: 69 Year
  Sex: Female

DRUGS (12)
  1. FLUTIFORM [Concomitant]
     Active Substance: FLUTICASONE PROPIONATE\FORMOTEROL FUMARATE
     Dosage: 250/10 MUG, QD
  2. BUSCOPAN [Concomitant]
     Active Substance: BUTYLSCOPOLAMINE BROMIDE
     Dosage: 10 MG, QD
  3. CODEINE PHOSPHATE [Concomitant]
     Active Substance: CODEINE PHOSPHATE
     Dosage: 20 MG, QD
  4. MOMETASON [Concomitant]
     Active Substance: MOMETASONE FUROATE
     Dosage: 50 MUG, QD (2 SPRAY)
  5. XGEVA [Suspect]
     Active Substance: DENOSUMAB
     Dosage: UNK
     Route: 058
  6. OXYCODON [Concomitant]
     Active Substance: OXYCODONE
     Dosage: 5 MG, QD
  7. BETAHISTINE [Concomitant]
     Active Substance: BETAHISTINE
     Dosage: 16 MG, QD
  8. FENTANYL. [Concomitant]
     Active Substance: FENTANYL
     Dosage: 12.5 MUG, 1X3DGN
  9. XGEVA [Suspect]
     Active Substance: DENOSUMAB
     Indication: PROPHYLAXIS
     Dosage: 120 MG (IN 1.70 ML), Q4WK
     Route: 058
  10. KAMILLOSAN [Concomitant]
  11. MACROGOL [Concomitant]
     Active Substance: POLYETHYLENE GLYCOLS
     Dosage: UNK UNK, QD
  12. METOCLOPRAMIDE. [Concomitant]
     Active Substance: METOCLOPRAMIDE
     Dosage: 10 MG, QD

REACTIONS (7)
  - Pain in extremity [Unknown]
  - Upper limb fracture [Recovering/Resolving]
  - Facial paralysis [Not Recovered/Not Resolved]
  - Facial pain [Unknown]
  - Metastases to liver [Not Recovered/Not Resolved]
  - Noninfective gingivitis [Not Recovered/Not Resolved]
  - Fracture nonunion [Not Recovered/Not Resolved]

NARRATIVE: CASE EVENT DATE: 201606
